FAERS Safety Report 20159572 (Version 1)
Quarter: 2021Q4

REPORT INFORMATION
  Report Type: Spontaneous
  Country: US (occurrence: US)
  Receive Date: 20211208
  Receipt Date: 20211208
  Transmission Date: 20220303
  Serious: No
  Sender: FDA-Public Use
  Company Number: US-SA-SAC20211129001107

PATIENT
  Sex: Female

DRUGS (3)
  1. DUPIXENT [Suspect]
     Active Substance: DUPILUMAB
     Indication: Dermatitis atopic
     Dosage: 300 MG, QOW
     Route: 058
     Dates: start: 20200331
  2. EMGALITY [Concomitant]
     Active Substance: GALCANEZUMAB-GNLM
  3. RIZATRIPTAN [Concomitant]
     Active Substance: RIZATRIPTAN

REACTIONS (1)
  - Product dose omission issue [Unknown]
